FAERS Safety Report 24738624 (Version 2)
Quarter: 2025Q3

REPORT INFORMATION
  Report Type: Report from Study
  Country: US (occurrence: US)
  Receive Date: 20241216
  Receipt Date: 20250825
  Transmission Date: 20251021
  Serious: Yes (Other)
  Sender: ALNYLAM PHARMACEUTICALS
  Company Number: US-ALNYLAM PHARMACEUTICALS, INC.-ALN-2024-006958

PATIENT

DRUGS (1)
  1. GIVLAARI [Suspect]
     Active Substance: GIVOSIRAN SODIUM
     Indication: Porphyria
     Route: 065
     Dates: start: 20211008, end: 20211008

REACTIONS (12)
  - Neuropathy peripheral [Unknown]
  - Brain injury [Unknown]
  - Depression [Unknown]
  - Memory impairment [Unknown]
  - Blood folate decreased [Unknown]
  - Vitamin B complex deficiency [Unknown]
  - Blood homocysteine increased [Unknown]
  - Back pain [Unknown]
  - Abdominal pain [Unknown]
  - Fall [Unknown]
  - Ill-defined disorder [Unknown]
  - Concussion [Unknown]

NARRATIVE: CASE EVENT DATE: 20210101
